FAERS Safety Report 8191017-2 (Version None)
Quarter: 2012Q1

REPORT INFORMATION
  Report Type: 
  Country: None (occurrence: None)
  Receive Date: 20120307
  Receipt Date: 20120220
  Transmission Date: 20120608
  Serious: No
  Sender: FDA-Public Use
  Company Number: US-ROXANE LABORATORIES, INC.-2012-RO-00692RO

PATIENT
  Age: 41 Year
  Sex: Male

DRUGS (5)
  1. TYLENOL-500 [Concomitant]
  2. OXYMORPHONE HYDROCHLORIDE [Suspect]
     Indication: BREAKTHROUGH PAIN
     Route: 048
  3. MERCAPTOPURINE [Concomitant]
  4. OXYMORPHONE HYDROCHLORIDE [Suspect]
     Indication: PAIN
  5. KLONOPIN [Concomitant]

REACTIONS (1)
  - DRUG INEFFECTIVE [None]
